FAERS Safety Report 5127296-5 (Version None)
Quarter: 2006Q4

REPORT INFORMATION
  Report Type: 
  Country: None (occurrence: None)
  Receive Date: 20061013
  Receipt Date: 20061005
  Transmission Date: 20070319
  Serious: Yes (Hospitalization)
  Sender: FDA-Public Use
  Company Number: JP-ABBOTT-06P-087-0346056-00

PATIENT
  Sex: Female

DRUGS (4)
  1. KLARICID TABLETS [Suspect]
     Indication: DRUG USE FOR UNKNOWN INDICATION
     Route: 048
     Dates: start: 20060908, end: 20060911
  2. PIPERACILLIN SODIUM [Concomitant]
     Indication: PYREXIA
     Route: 042
     Dates: start: 20060908, end: 20060911
  3. CEFTRIAXONE SODIUM [Concomitant]
     Indication: PYREXIA
     Route: 042
     Dates: start: 20060911, end: 20060916
  4. MINOCYCLINE HYDROCHLORIDE [Concomitant]
     Indication: PYREXIA
     Route: 048
     Dates: start: 20060911, end: 20060916

REACTIONS (4)
  - HEPATIC FUNCTION ABNORMAL [None]
  - PLATELET COUNT DECREASED [None]
  - PYREXIA [None]
  - WHITE BLOOD CELL COUNT DECREASED [None]
